FAERS Safety Report 10260162 (Version 2)
Quarter: 2014Q2

REPORT INFORMATION
  Report Type: Other
  Country: CA (occurrence: CA)
  Receive Date: 20140625
  Receipt Date: 20140625
  Transmission Date: 20141212
  Serious: Yes (Hospitalization, Other)
  Sender: FDA-Public Use
  Company Number: CA-GSKPPD-2014GSK018144

PATIENT
  Age: 71 Year
  Sex: Female

DRUGS (4)
  1. AVANDIA [Suspect]
     Indication: DIABETES MELLITUS
     Dosage: DATE OF AVANDIA USE COULD NOT BE CONFIRMED IN RECORDS REVIEWED.
     Route: 048
  2. ATENOLOL [Concomitant]
  3. NITRO-DUR [Concomitant]
  4. VASOTEC [Concomitant]

REACTIONS (8)
  - Cardiac failure congestive [None]
  - Aortic valve sclerosis [Recovered/Resolved]
  - Mitral valve incompetence [Recovered/Resolved]
  - Angina pectoris [Recovered/Resolved]
  - Cardiac murmur [None]
  - Myocardial ischaemia [None]
  - Coronary artery disease [None]
  - Cardiac disorder [None]
